FAERS Safety Report 9719312 (Version 1)
Quarter: 2013Q4

REPORT INFORMATION
  Report Type: Spontaneous
  Country: US (occurrence: US)
  Receive Date: 20131127
  Receipt Date: 20131127
  Transmission Date: 20140711
  Serious: Yes (Hospitalization)
  Sender: FDA-Public Use
  Company Number: US-PFIZER INC-2013334047

PATIENT
  Sex: 0

DRUGS (2)
  1. GLIPIZIDE [Suspect]
     Dosage: UNK
  2. LANTUS [Suspect]
     Dosage: UNK

REACTIONS (2)
  - Blood glucose increased [Unknown]
  - Vision blurred [Unknown]
